FAERS Safety Report 22700834 (Version 3)
Quarter: 2023Q4

REPORT INFORMATION
  Report Type: Spontaneous
  Country: US (occurrence: US)
  Receive Date: 20230713
  Receipt Date: 20231118
  Transmission Date: 20240110
  Serious: No
  Sender: FDA-Public Use
  Company Number: US-SA-SAC20230712000667

PATIENT
  Age: 13 Year
  Sex: Male

DRUGS (4)
  1. DUPIXENT [Suspect]
     Active Substance: DUPILUMAB
     Indication: Dermatitis atopic
     Dosage: 200 MG, QOW
     Route: 058
     Dates: start: 20230504
  2. ELIDEL [Concomitant]
     Active Substance: PIMECROLIMUS
     Dosage: UNK
  3. TACROLIMUS [Concomitant]
     Active Substance: TACROLIMUS
     Dosage: UNK
  4. CIBINQO [Concomitant]
     Active Substance: ABROCITINIB

REACTIONS (6)
  - Discomfort [Unknown]
  - Sleep disorder due to a general medical condition [Unknown]
  - Weight increased [Unknown]
  - Pruritus [Unknown]
  - Rash [Unknown]
  - Product dose omission in error [Unknown]

NARRATIVE: CASE EVENT DATE: 20230101
